FAERS Safety Report 4310720-5 (Version None)
Quarter: 2004Q1

REPORT INFORMATION
  Report Type: 
  Country: None (occurrence: None)
  Receive Date: 20040301
  Receipt Date: 20040114
  Transmission Date: 20041129
  Serious: No
  Sender: FDA-Public Use
  Company Number: WAES 0401USA01104

PATIENT
  Age: 54 Year
  Sex: Male

DRUGS (3)
  1. ZETIA [Suspect]
     Indication: BLOOD CHOLESTEROL INCREASED
     Dosage: 10MG/HS/PO
     Dates: start: 20031101
  2. NIASPAN [Concomitant]
  3. SYNTHROID [Concomitant]

REACTIONS (1)
  - PAIN IN EXTREMITY [None]
